FAERS Safety Report 16290442 (Version 1)
Quarter: 2019Q2

REPORT INFORMATION
  Report Type: Spontaneous
  Country: US (occurrence: US)
  Receive Date: 20190404
  Receipt Date: 20190404
  Transmission Date: 20190711
  Serious: No
  Sender: FDA-Public Use
  Company Number: None

PATIENT
  Age: 59 Year
  Sex: Female

DRUGS (2)
  1. COSENTYX [Suspect]
     Active Substance: SECUKINUMAB
     Indication: PSORIATIC ARTHROPATHY
     Dosage: INJECT 150MG (1 PEN) SUBCUTANEOUSLY ONCE A WEEK  AT WEEKS 2, 3 AND 4   AS DIRECTED
     Route: 058
     Dates: start: 201902
  2. COSENTYX [Suspect]
     Active Substance: SECUKINUMAB
     Indication: RHEUMATOID ARTHRITIS
     Dosage: INJECT 150MG (1 PEN) SUBCUTANEOUSLY ONCE A WEEK  AT WEEKS 2, 3 AND 4   AS DIRECTED
     Route: 058
     Dates: start: 201902

REACTIONS (9)
  - Peripheral swelling [None]
  - Malaise [None]
  - Limb injury [None]
  - Thrombosis [None]
  - Fall [None]
  - Stress [None]
  - Therapy cessation [None]
  - Erythema [None]
  - Skin reaction [None]
